FAERS Safety Report 14382346 (Version 1)
Quarter: 2018Q1

REPORT INFORMATION
  Report Type: Spontaneous
  Country: US (occurrence: US)
  Receive Date: 20180112
  Receipt Date: 20180112
  Transmission Date: 20180509
  Serious: No
  Sender: FDA-Public Use
  Company Number: US-TEVA-2017-US-837995

PATIENT
  Age: 16 Year
  Sex: Female

DRUGS (1)
  1. ADAPALENE. [Suspect]
     Active Substance: ADAPALENE
     Indication: ACNE
     Route: 065
     Dates: start: 20171102, end: 20171109

REACTIONS (2)
  - Application site pain [Recovered/Resolved]
  - Application site erythema [Recovered/Resolved]

NARRATIVE: CASE EVENT DATE: 20171102
